FAERS Safety Report 9895419 (Version 2)
Quarter: 2014Q1

REPORT INFORMATION
  Report Type: Spontaneous
  Country: US (occurrence: US)
  Receive Date: 20140213
  Receipt Date: 20140213
  Transmission Date: 20141002
  Serious: No
  Sender: FDA-Public Use
  Company Number: US-BRISTOL-MYERS SQUIBB COMPANY-17360983

PATIENT
  Age: 57 Year
  Sex: Female
  Weight: 61.22 kg

DRUGS (1)
  1. ORENCIA FOR INJ [Suspect]
     Indication: RHEUMATOID ARTHRITIS
     Dosage: STARTED AT 500MG?RECENT DOSE 23JAN2013
     Route: 042

REACTIONS (2)
  - Rheumatoid arthritis [Unknown]
  - Weight increased [Unknown]
